FAERS Safety Report 6480966-9 (Version None)
Quarter: 2009Q4

REPORT INFORMATION
  Report Type: 
  Country: None (occurrence: None)
  Receive Date: 20091208
  Receipt Date: 20091201
  Transmission Date: 20100525
  Serious: Yes (Hospitalization, Other)
  Sender: FDA-Public Use
  Company Number: US-B.I. PHARMACEUTICALS,INC./RIDGEFIELD-2009-BP-12704BP

PATIENT
  Age: 84 Year
  Sex: Male

DRUGS (14)
  1. FLOMAX [Suspect]
     Indication: BENIGN PROSTATIC HYPERPLASIA
     Dosage: 0.4 MG
     Dates: start: 20040101
  2. FLOMAX [Suspect]
     Indication: PROSTATOMEGALY
  3. ADVAIR DISKUS 100/50 [Concomitant]
  4. SPIRIVA [Concomitant]
  5. DIGOXIN [Concomitant]
  6. DILTIAZEM [Concomitant]
  7. EFFEXOR [Concomitant]
  8. MULTIVITAMIN [Concomitant]
  9. CALCIUM [Concomitant]
  10. COUMADIN [Concomitant]
  11. DUONEB [Concomitant]
  12. ALBUTEROL [Concomitant]
  13. COLACE [Concomitant]
  14. RITALIN [Concomitant]

REACTIONS (10)
  - BLOOD TEST ABNORMAL [None]
  - CONFUSIONAL STATE [None]
  - DYSPHAGIA [None]
  - DYSURIA [None]
  - HYPERHIDROSIS [None]
  - INCORRECT ROUTE OF DRUG ADMINISTRATION [None]
  - OXYGEN SATURATION DECREASED [None]
  - PARKINSON'S DISEASE [None]
  - PNEUMONIA [None]
  - SKIN DISCOLOURATION [None]
